FAERS Safety Report 6268688-0 (Version None)
Quarter: 2009Q3

REPORT INFORMATION
  Report Type: 
  Country: None (occurrence: None)
  Receive Date: 20090713
  Receipt Date: 20090713
  Transmission Date: 20100115
  Serious: No
  Sender: FDA-Public Use
  Company Number: None

PATIENT
  Age: 53 Year
  Sex: Female
  Weight: 88.4514 kg

DRUGS (2)
  1. ZICAM NASAL DECONGESTANT GEL 0.05% OXYMETAZOLINE ZICAM [Suspect]
     Indication: NASOPHARYNGITIS
     Dosage: SPRAY ONCE NASAL
     Route: 045
     Dates: start: 20081216, end: 20081217
  2. . [Concomitant]

REACTIONS (2)
  - ANOSMIA [None]
  - DYSGEUSIA [None]
